FAERS Safety Report 13226036 (Version 1)
Quarter: 2017Q1

REPORT INFORMATION
  Report Type: Spontaneous
  Country: US (occurrence: US)
  Receive Date: 20170211
  Receipt Date: 20170211
  Transmission Date: 20170428
  Serious: Yes (Disabling)
  Sender: FDA-Public Use
  Company Number: None

PATIENT
  Age: 71 Year
  Sex: Female
  Weight: 94.05 kg

DRUGS (7)
  1. HYDROCHLOROT [Concomitant]
     Active Substance: HYDROCHLOROTHIAZIDE
  2. METOPROLOL. [Concomitant]
     Active Substance: METOPROLOL
  3. LEVOTHYROXIN [Concomitant]
     Active Substance: LEVOTHYROXINE
  4. CIPROFLOXACIN. [Suspect]
     Active Substance: CIPROFLOXACIN
     Indication: DIVERTICULITIS
     Dosage: ?          QUANTITY:1 CAPSULE(S);?
     Route: 048
     Dates: start: 20161230, end: 20170109
  5. IRBESARTAN. [Concomitant]
     Active Substance: IRBESARTAN
  6. AMLODIPINE [Concomitant]
     Active Substance: AMLODIPINE BESYLATE
  7. SIMVISTATIN [Concomitant]
     Active Substance: SIMVASTATIN

REACTIONS (7)
  - Arthralgia [None]
  - Activities of daily living impaired [None]
  - Visual impairment [None]
  - Pain in extremity [None]
  - Gait disturbance [None]
  - Vitreous floaters [None]
  - Neuropathy peripheral [None]

NARRATIVE: CASE EVENT DATE: 20170105
